FAERS Safety Report 11327668 (Version 1)
Quarter: 2015Q3

REPORT INFORMATION
  Report Type: Spontaneous
  Country: US (occurrence: US)
  Receive Date: 20150731
  Receipt Date: 20150731
  Transmission Date: 20151125
  Serious: No
  Sender: FDA-Public Use
  Company Number: US-LUNDBECK-DKLU2001166

PATIENT
  Sex: Female
  Weight: 91 kg

DRUGS (4)
  1. ONFI [Suspect]
     Active Substance: CLOBAZAM
     Route: 048
     Dates: start: 20150415
  2. ONFI [Suspect]
     Active Substance: CLOBAZAM
     Route: 048
     Dates: start: 20150415
  3. ONFI [Suspect]
     Active Substance: CLOBAZAM
     Indication: SEIZURE
     Route: 048
  4. CLOZARIL [Concomitant]
     Active Substance: CLOZAPINE
     Indication: AGGRESSION
     Route: 065

REACTIONS (3)
  - Aggression [Unknown]
  - Drooling [Unknown]
  - Sedation [Unknown]
